FAERS Safety Report 18121848 (Version 6)
Quarter: 2023Q1

REPORT INFORMATION
  Report Type: Spontaneous
  Country: US (occurrence: US)
  Receive Date: 20200807
  Receipt Date: 20230222
  Transmission Date: 20230417
  Serious: No
  Sender: FDA-Public Use
  Company Number: None

PATIENT
  Sex: Female

DRUGS (3)
  1. VIVELLE-DOT [Suspect]
     Active Substance: ESTRADIOL
     Indication: Product used for unknown indication
     Dosage: 0.05 MG, Q2W
     Route: 065
  2. LEVOTHYROXINE [Concomitant]
     Active Substance: LEVOTHYROXINE
     Indication: Product used for unknown indication
     Dosage: UNK
     Route: 065
  3. LIOTHYRONINE [Concomitant]
     Active Substance: LIOTHYRONINE
     Indication: Product used for unknown indication
     Dosage: UNK
     Route: 065

REACTIONS (10)
  - Application site vesicles [Unknown]
  - Application site pain [Unknown]
  - Application site scab [Unknown]
  - Application site irritation [Unknown]
  - Application site inflammation [Unknown]
  - Urticaria [Unknown]
  - Application site erythema [Unknown]
  - Application site swelling [Unknown]
  - Application site rash [Unknown]
  - Product quality issue [Unknown]
